FAERS Safety Report 8761015 (Version 2)
Quarter: 2012Q4

REPORT INFORMATION
  Report Type: 
  Country: US (occurrence: US)
  Receive Date: 20120830
  Receipt Date: 20120830
  Transmission Date: 20130627
  Serious: Yes (Disabling, Other)
  Sender: FDA-Public Use
  Company Number: US-009507513-0911USA04323

PATIENT

DRUGS (5)
  1. FOSAMAX [Suspect]
     Indication: OSTEOPOROSIS
     Dosage: 70 mg, QW
     Route: 048
     Dates: start: 20050627, end: 20080401
  2. ADVAIR [Concomitant]
     Dosage: 250/50
     Route: 055
  3. LEVOTIROXINA S.O [Concomitant]
     Dosage: .125 ?g, qd
  4. LIPITOR [Concomitant]
     Dosage: 40 mg, qd
  5. CALCIUM (UNSPECIFIED) [Concomitant]
     Dosage: 1000 mg, qd

REACTIONS (30)
  - Osteonecrosis of jaw [Unknown]
  - Non-Hodgkin^s lymphoma [Unknown]
  - Oral infection [Not Recovered/Not Resolved]
  - Dental caries [Not Recovered/Not Resolved]
  - Periodontal disease [Not Recovered/Not Resolved]
  - Paraesthesia [Not Recovered/Not Resolved]
  - Cataract [Unknown]
  - Nodule [Unknown]
  - Pain in jaw [Unknown]
  - Sinus headache [Unknown]
  - Urinary incontinence [Not Recovered/Not Resolved]
  - Constipation [Unknown]
  - Gastrooesophageal reflux disease [Unknown]
  - Diverticulum intestinal [Unknown]
  - Haemorrhoids [Unknown]
  - Hiatus hernia [Unknown]
  - Fatigue [Unknown]
  - Pleural effusion [Unknown]
  - Emphysema [Unknown]
  - Pulmonary mass [Unknown]
  - Kidney fibrosis [Unknown]
  - Carpal tunnel syndrome [Unknown]
  - Osteoarthritis [Unknown]
  - Neuralgia [Unknown]
  - Arthralgia [Unknown]
  - Anxiety [Unknown]
  - Depression [Unknown]
  - Lymphadenopathy [Unknown]
  - Richter^s syndrome [Unknown]
  - Bone loss [Unknown]
